APPROVED DRUG PRODUCT: METRONIDAZOLE
Active Ingredient: METRONIDAZOLE
Strength: 750MG
Dosage Form/Route: TABLET, EXTENDED RELEASE;ORAL
Application: A076462 | Product #001
Applicant: ABLE LABORATORIES INC
Approved: Jun 25, 2003 | RLD: No | RS: No | Type: DISCN